FAERS Safety Report 6335338-4 (Version None)
Quarter: 2009Q3

REPORT INFORMATION
  Report Type: 
  Country: None (occurrence: None)
  Receive Date: 20090831
  Receipt Date: 20090818
  Transmission Date: 20100115
  Serious: Yes (Other)
  Sender: FDA-Public Use
  Company Number: US-ELI_LILLY_AND_COMPANY-US200908004409

PATIENT
  Age: 70 Year
  Sex: Female

DRUGS (4)
  1. ZYPREXA [Suspect]
     Dosage: 20 MG, UNK
  2. ZYPREXA [Suspect]
     Dosage: 10 MG, UNK
  3. HALDOL [Concomitant]
     Indication: SCHIZOPHRENIA
  4. DEPAKOTE [Concomitant]
     Indication: SCHIZOPHRENIA

REACTIONS (1)
  - BRADYCARDIA [None]
